FAERS Safety Report 18229304 (Version 1)
Quarter: 2020Q3

REPORT INFORMATION
  Report Type: Spontaneous
  Country: NL (occurrence: NL)
  Receive Date: 20200903
  Receipt Date: 20200903
  Transmission Date: 20201103
  Serious: Yes (Hospitalization)
  Sender: FDA-Public Use
  Company Number: NVSC2020NL238276

PATIENT
  Age: 45 Year
  Sex: Female

DRUGS (5)
  1. PACLITAXEL. [Suspect]
     Active Substance: PACLITAXEL
     Indication: HER2 POSITIVE BREAST CANCER
     Dosage: 108 MG, TIW (MOST RECENT DOSE OF PACLITAXEL: 10 APR 2020)
     Route: 042
     Dates: start: 20191018
  2. PERTUZUMAB. [Suspect]
     Active Substance: PERTUZUMAB
     Indication: HER2 POSITIVE BREAST CANCER
     Dosage: 420 MG, TIW (MOST RECENT DOSE OF PERTUZUMAB 17 JUN 2020)
     Route: 042
     Dates: start: 20191018
  3. TRASTUZUMAB. [Suspect]
     Active Substance: TRASTUZUMAB
     Indication: HER2 POSITIVE BREAST CANCER
     Dosage: 386 MG, TIW (MOST RECENT DOSE OF TRASTUZUMAB 17 JUN 2020)
     Route: 042
     Dates: start: 20191018
  4. CARBOPLATIN. [Suspect]
     Active Substance: CARBOPLATIN
     Indication: HER2 POSITIVE BREAST CANCER
     Dosage: 401 MG, TIW (MOST RECENT DOSE OF CARBOPLATIN: 10 APR 2020)
     Route: 042
     Dates: start: 20191018
  5. TRASTUZUMAB EMTANSINE [Suspect]
     Active Substance: ADO-TRASTUZUMAB EMTANSINE
     Indication: HER2 POSITIVE BREAST CANCER
     Dosage: 240 MG
     Route: 042
     Dates: start: 20200808, end: 20200808

REACTIONS (1)
  - Platelet count decreased [Unknown]

NARRATIVE: CASE EVENT DATE: 20200813
